FAERS Safety Report 5819814-6 (Version None)
Quarter: 2008Q3

REPORT INFORMATION
  Report Type: 
  Country: None (occurrence: None)
  Receive Date: 20080723
  Receipt Date: 20080717
  Transmission Date: 20090109
  Serious: Yes (Other)
  Sender: FDA-Public Use
  Company Number: JP-ABBOTT-08P-087-0460756-00

PATIENT
  Age: 45 Year
  Sex: Male

DRUGS (5)
  1. SEVOFLURANE [Suspect]
     Indication: GENERAL ANAESTHESIA
     Dosage: UNKNOWN
  2. NITROUS OXIDE [Suspect]
     Indication: GENERAL ANAESTHESIA
     Dosage: UNKNOWN
  3. VECURONIUM BROMIDE [Suspect]
     Indication: GENERAL ANAESTHESIA
     Dosage: UNKNOWN
  4. PROPOFOL [Suspect]
     Indication: GENERAL ANAESTHESIA
     Dosage: UNKNOWN
  5. FENTANYL-100 [Suspect]
     Indication: GENERAL ANAESTHESIA
     Dosage: UNKNOWN

REACTIONS (2)
  - RENAL FAILURE ACUTE [None]
  - RHABDOMYOLYSIS [None]
